FAERS Safety Report 25962082 (Version 1)
Quarter: 2025Q4

REPORT INFORMATION
  Report Type: Report from Study
  Country: US (occurrence: US)
  Receive Date: 20251027
  Receipt Date: 20251027
  Transmission Date: 20260118
  Serious: Yes (Other)
  Sender: ALEXION PHARMACEUTICALS
  Company Number: 202508USA004545US

PATIENT
  Sex: Female

DRUGS (3)
  1. SAPHNELO [Suspect]
     Active Substance: ANIFROLUMAB-FNIA
     Indication: Lupus-like syndrome
     Dosage: 300MG/2ML,300 MILLIGRAM, Q4W
     Dates: start: 20250623
  2. PREDNISONE [Concomitant]
     Active Substance: PREDNISONE
     Dosage: UNK
     Route: 065
  3. COLCHICINE [Concomitant]
     Active Substance: COLCHICINE
     Dosage: UNK
     Route: 065

REACTIONS (2)
  - Swelling [Recovered/Resolved]
  - Pericarditis [Unknown]
